FAERS Safety Report 8596078-4 (Version None)
Quarter: 2012Q3

REPORT INFORMATION
  Report Type: 
  Country: None (occurrence: None)
  Receive Date: 20120815
  Receipt Date: 20120731
  Transmission Date: 20120928
  Serious: Yes (Death, Other)
  Sender: FDA-Public Use
  Company Number: US-ROCHE-706574

PATIENT

DRUGS (2)
  1. AVASTIN [Suspect]
     Indication: BREAST CANCER METASTATIC
     Route: 065
  2. FULVESTRANT [Suspect]
     Indication: BREAST CANCER METASTATIC
     Route: 065

REACTIONS (11)
  - PROTEINURIA [None]
  - HYPERTENSION [None]
  - LEFT VENTRICULAR FAILURE [None]
  - DISSEMINATED INTRAVASCULAR COAGULATION [None]
  - HEADACHE [None]
  - BLOOD CREATININE INCREASED [None]
  - HAEMORRHAGIC STROKE [None]
  - CONFUSIONAL STATE [None]
  - CEREBRAL ISCHAEMIA [None]
  - DEVICE RELATED INFECTION [None]
  - HAEMORRHAGE INTRACRANIAL [None]
